FAERS Safety Report 22819194 (Version 2)
Quarter: 2023Q4

REPORT INFORMATION
  Report Type: Spontaneous
  Country: US (occurrence: US)
  Receive Date: 20230814
  Receipt Date: 20231219
  Transmission Date: 20240109
  Serious: Yes (Hospitalization, Other)
  Sender: FDA-Public Use
  Company Number: US-BRISTOL-MYERS SQUIBB COMPANY-2023-112681

PATIENT
  Age: 74 Year
  Sex: Male

DRUGS (1)
  1. POMALYST [Suspect]
     Active Substance: POMALIDOMIDE
     Indication: Plasma cell myeloma
     Dosage: FREQUENCY: TAKE 1 CAPSULE BY MOUTH EVERY DAY FOR 21 DAYS ON THEN 7 DAYS OFF; REPEAT CYCLE
     Route: 048
     Dates: start: 20230120

REACTIONS (7)
  - Nausea [Not Recovered/Not Resolved]
  - Pneumonia [Recovered/Resolved]
  - Pain [Not Recovered/Not Resolved]
  - Constipation [Not Recovered/Not Resolved]
  - Somnolence [Not Recovered/Not Resolved]
  - Fatigue [Not Recovered/Not Resolved]
  - Off label use [Unknown]
